FAERS Safety Report 4964749-4 (Version None)
Quarter: 2006Q1

REPORT INFORMATION
  Report Type: 
  Country: None (occurrence: None)
  Receive Date: 20060331
  Receipt Date: 20060322
  Transmission Date: 20060701
  Serious: Yes (Other)
  Sender: FDA-Public Use
  Company Number: HQWYE633102FEB06

PATIENT
  Age: 69 Year
  Sex: Male

DRUGS (15)
  1. RAPAMUNE [Suspect]
     Indication: PROPHYLAXIS AGAINST TRANSPLANT REJECTION
     Dosage: SEE IMAGE
     Route: 048
     Dates: start: 20060119, end: 20060101
  2. RAPAMUNE [Suspect]
     Indication: PROPHYLAXIS AGAINST TRANSPLANT REJECTION
     Dosage: SEE IMAGE
     Route: 048
     Dates: start: 20060101, end: 20060126
  3. RAPAMUNE [Suspect]
     Indication: PROPHYLAXIS AGAINST TRANSPLANT REJECTION
     Dosage: SEE IMAGE
     Route: 048
     Dates: start: 20060208
  4. CELLCEPT [Concomitant]
  5. CELLCEPT [Concomitant]
  6. GANCICLOVIR (GANCICLOVIR) [Concomitant]
  7. SOLU-MEDROL [Concomitant]
  8. ASPIRIN [Concomitant]
  9. LASIX [Concomitant]
  10. SIBONEET (AMINOACETIC ACID/CHLOROPHYLLIN SODIUM COPPER COMPLEX/GLYCYRR [Concomitant]
  11. LOSEC (OMEPRAZOLE) [Concomitant]
  12. BACTRIM DS [Concomitant]
  13. MYLANTA (ALUMINIUM HYDROXIDE GEL, DRIED/DIMETICONE, ACTIVATED/MAGNESIU [Concomitant]
  14. MYCOSTATIN [Concomitant]
  15. EPOETIN ALFA (EPOETIN ALFA) [Concomitant]

REACTIONS (2)
  - DRUG INEFFECTIVE [None]
  - KIDNEY TRANSPLANT REJECTION [None]
